FAERS Safety Report 6031899-3 (Version None)
Quarter: 2009Q1

REPORT INFORMATION
  Report Type: 
  Country: None (occurrence: None)
  Receive Date: 20090108
  Receipt Date: 20090105
  Transmission Date: 20090719
  Serious: Yes (Other)
  Sender: FDA-Public Use
  Company Number: US-PFIZER INC-2007086085

PATIENT
  Sex: Female
  Weight: 77.3 kg

DRUGS (5)
  1. LIPITOR [Suspect]
     Indication: BLOOD CHOLESTEROL INCREASED
     Dates: start: 20070601
  2. CELEBREX [Concomitant]
  3. TOPAMAX [Concomitant]
     Indication: TREMOR
  4. ASCOFER [Concomitant]
  5. CHLORAZEPAM [Concomitant]

REACTIONS (2)
  - DIARRHOEA [None]
  - INTRACRANIAL ANEURYSM [None]
